FAERS Safety Report 7141456-3 (Version None)
Quarter: 2010Q4

REPORT INFORMATION
  Report Type: 
  Country: None (occurrence: None)
  Receive Date: 20101126
  Receipt Date: 20101116
  Transmission Date: 20110411
  Serious: No
  Sender: FDA-Public Use
  Company Number: 759145

PATIENT
  Age: 67 Year
  Sex: Male

DRUGS (3)
  1. METHOTREXATE [Suspect]
     Indication: RHEUMATOID ARTHRITIS
  2. ADALIMUMAB [Suspect]
     Indication: RHEUMATOID ARTHRITIS
  3. FOLIC ACID [Concomitant]

REACTIONS (8)
  - EMPHYSEMA [None]
  - ODYNOPHAGIA [None]
  - PULMONARY FIBROSIS [None]
  - PYREXIA [None]
  - RALES [None]
  - TONSILLAR INFLAMMATION [None]
  - TONSILLAR ULCER [None]
  - TUBERCULOSIS [None]
